FAERS Safety Report 9478060 (Version 2)
Quarter: 2013Q3

REPORT INFORMATION
  Report Type: Report from Study
  Country: HU (occurrence: HU)
  Receive Date: 20130827
  Receipt Date: 20130827
  Transmission Date: 20140515
  Serious: Yes (Hospitalization)
  Sender: FDA-Public Use
  Company Number: PHHO2009HU01897

PATIENT
  Age: 54 Year
  Sex: Male
  Weight: 81 kg

DRUGS (8)
  1. ALISKIREN [Suspect]
     Indication: CARDIOVASCULAR DISORDER
     Dosage: UNK
     Route: 048
     Dates: start: 20081023, end: 20081217
  2. ASTRIX [Concomitant]
     Indication: MYOCARDIAL ISCHAEMIA
  3. PLAVIX [Concomitant]
     Indication: MYOCARDIAL ISCHAEMIA
  4. DIOVAN [Concomitant]
     Indication: CARDIAC FAILURE
  5. TALLITON [Concomitant]
     Indication: CARDIAC FAILURE
  6. PREDUCTAL [Concomitant]
     Indication: MYOCARDIAL ISCHAEMIA
  7. NITRODERM TTS [Concomitant]
     Indication: MYOCARDIAL ISCHAEMIA
  8. FURON [Concomitant]
     Indication: CARDIAC FAILURE

REACTIONS (4)
  - Cardiac failure [Recovered/Resolved]
  - Hypotonia [Recovered/Resolved]
  - Disease progression [Recovered/Resolved]
  - Device dislocation [Recovered/Resolved]
